FAERS Safety Report 9200703 (Version 3)
Quarter: 2013Q2

REPORT INFORMATION
  Report Type: Spontaneous
  Country: BR (occurrence: BR)
  Receive Date: 20130401
  Receipt Date: 20130418
  Transmission Date: 20140414
  Serious: Yes (Hospitalization, Other)
  Sender: FDA-Public Use
  Company Number: BR-AMGEN-BRACT2012026259

PATIENT
  Age: 45 Year
  Sex: Female
  Weight: 72 kg

DRUGS (15)
  1. ENBREL [Suspect]
     Indication: RHEUMATOID ARTHRITIS
     Dosage: 50 MG, QWK
     Route: 058
     Dates: start: 201110
  2. ENBREL [Suspect]
     Dosage: 50 MG, QWK
     Route: 058
     Dates: start: 201209
  3. CORTISONE [Concomitant]
     Dosage: UNK
  4. PREDNISONE [Concomitant]
     Dosage: 5 MG, 1X/DAY
  5. OMEPRAZOLE [Concomitant]
     Indication: GASTRIC DISORDER
     Dosage: 40 MG, QD ((2 TABLETS OF 20MG) ONCE DAILY
  6. ARAVA [Concomitant]
     Indication: ARTHRITIS
     Dosage: 20 MG, 1X/DAY
  7. MAREVAN [Concomitant]
     Indication: COAGULOPATHY
     Dosage: UNK
  8. MAREVAN [Concomitant]
     Indication: THROMBOSIS
     Dosage: STRENGTH 5MG, UNK
  9. AMITRIPTYLINE [Concomitant]
     Indication: DEPRESSION
     Dosage: UNK
  10. AMITRIPTYLINE [Concomitant]
     Indication: DEPRESSED MOOD
  11. NIMESULIDE [Concomitant]
     Dosage: UNK
  12. RIVOTRIL [Concomitant]
     Dosage: UNK
  13. FOLIC ACID [Concomitant]
     Dosage: 5 MG, 3 TIMES/WK
  14. FOLIC ACID [Concomitant]
     Dosage: 5 MG, THREE TIMES A WEEK
  15. TYLEX                              /00116401/ [Concomitant]
     Dosage: EVERY 6 HOURS (WHEN FEELING PAIN)

REACTIONS (31)
  - Immunodeficiency [Unknown]
  - Deep vein thrombosis [Unknown]
  - Joint injury [Not Recovered/Not Resolved]
  - Neck pain [Unknown]
  - Pain [Not Recovered/Not Resolved]
  - Abdominal pain upper [Unknown]
  - Pain in jaw [Unknown]
  - Dyspnoea [Not Recovered/Not Resolved]
  - Tooth disorder [Not Recovered/Not Resolved]
  - Asthenia [Not Recovered/Not Resolved]
  - Somnolence [Not Recovered/Not Resolved]
  - Arthralgia [Unknown]
  - Cyst [Unknown]
  - Joint swelling [Not Recovered/Not Resolved]
  - Nausea [Unknown]
  - Salivary hypersecretion [Unknown]
  - Weight increased [Unknown]
  - Hypoaesthesia [Unknown]
  - Headache [Unknown]
  - Cough [Not Recovered/Not Resolved]
  - Tachycardia [Unknown]
  - Wheezing [Unknown]
  - Wrong technique in drug usage process [Unknown]
  - Lung infection [Unknown]
  - Injection site pain [Unknown]
  - Productive cough [Unknown]
  - Pyrexia [Unknown]
  - Abdominal pain [Unknown]
  - Hyperhidrosis [Unknown]
  - Rhinitis [Unknown]
  - Influenza [Unknown]
